FAERS Safety Report 18791971 (Version 2)
Quarter: 2021Q2

REPORT INFORMATION
  Report Type: Report from Study
  Country: None (occurrence: IL)
  Receive Date: 20210126
  Receipt Date: 20210505
  Transmission Date: 20210717
  Serious: Yes (Hospitalization)
  Sender: FDA-Public Use
  Company Number: IL-ABBVIE-21K-082-3739105-00

PATIENT
  Age: 60 Year
  Sex: Male
  Weight: 85 kg

DRUGS (16)
  1. RITUXIMAB. [Suspect]
     Active Substance: RITUXIMAB
     Route: 065
     Dates: start: 20210303, end: 20210303
  2. VENCLEXTA [Suspect]
     Active Substance: VENETOCLAX
     Dosage: 100 MG, HEMATOLOGIC TOXICITIES, PLEASE COMPLETE AN AE FORM
     Route: 048
     Dates: start: 20201216, end: 20201217
  3. VENCLEXTA [Suspect]
     Active Substance: VENETOCLAX
     Dosage: 10 MG, HEMATOLOGIC TOXICITIES, PLEASE COMPLETE AN AE FORM
     Route: 048
     Dates: start: 20201230
  4. RITUXIMAB. [Suspect]
     Active Substance: RITUXIMAB
     Route: 065
     Dates: start: 20201216, end: 20201216
  5. ALLOPURINOL. [Concomitant]
     Active Substance: ALLOPURINOL
     Indication: PROPHYLAXIS
     Route: 065
     Dates: start: 20201027
  6. RITUXIMAB. [Suspect]
     Active Substance: RITUXIMAB
     Route: 065
     Dates: start: 20201125, end: 20201125
  7. VENCLEXTA [Suspect]
     Active Substance: VENETOCLAX
     Dosage: 50 MG, DOSE INCREASE ACCORDING TO VENETOCLAX DOSE TITRATION?SCHEME
     Route: 048
     Dates: start: 20201209, end: 20201215
  8. RITUXIMAB. [Suspect]
     Active Substance: RITUXIMAB
     Indication: CHRONIC LYMPHOCYTIC LEUKAEMIA
     Route: 065
     Dates: start: 20201104, end: 20201104
  9. RITUXIMAB. [Suspect]
     Active Substance: RITUXIMAB
     Route: 065
     Dates: start: 20210203, end: 20210203
  10. PREDNISONE. [Concomitant]
     Active Substance: PREDNISONE
     Indication: PREMEDICATION
     Route: 065
     Dates: start: 20201030, end: 20201101
  11. VENCLEXTA [Suspect]
     Active Substance: VENETOCLAX
     Indication: CHRONIC LYMPHOCYTIC LEUKAEMIA
     Dosage: 10 MG, HEMATOLOGIC TOXICITIES, PLEASE COMPLETE AN AE FORM
     Route: 048
     Dates: start: 20201125, end: 20201128
  12. RITUXIMAB. [Suspect]
     Active Substance: RITUXIMAB
     Route: 065
     Dates: start: 20210331, end: 20210331
  13. VENCLEXTA [Suspect]
     Active Substance: VENETOCLAX
     Dosage: 10 MG, HEMATOLOGIC TOXICITIES, PLEASE COMPLETE AN AE FORM
     Route: 048
     Dates: start: 20201125, end: 20201128
  14. VENCLEXTA [Suspect]
     Active Substance: VENETOCLAX
     Dosage: 20 MG, DOSE INCREASE ACCORDING TO VENETOCLAX DOSE TITRATION SCHEME
     Route: 048
     Dates: start: 20201129, end: 20201208
  15. VENCLEXTA [Suspect]
     Active Substance: VENETOCLAX
     Dosage: 100 MG, DOSE INCREASE ACCORDING TO VENETOCLAX DOSE TITRATION SCHEME
     Route: 048
     Dates: start: 20201221, end: 20201229
  16. RITUXIMAB. [Suspect]
     Active Substance: RITUXIMAB
     Route: 065
     Dates: start: 20210428, end: 20210428

REACTIONS (3)
  - Abdominal pain upper [Recovered/Resolved]
  - Blood lactate dehydrogenase increased [Recovered/Resolved]
  - Nausea [Recovered/Resolved]

NARRATIVE: CASE EVENT DATE: 20201125
